FAERS Safety Report 18417209 (Version 2)
Quarter: 2021Q1

REPORT INFORMATION
  Report Type: Spontaneous
  Country: US (occurrence: US)
  Receive Date: 20201022
  Receipt Date: 20210111
  Transmission Date: 20210419
  Serious: Yes (Other)
  Sender: FDA-Public Use
  Company Number: US-PURDUE-USA-2020-0172150

PATIENT
  Sex: Male

DRUGS (4)
  1. OXYCODONE HCL CR TABLETS (SIMILAR TO NDA 22?272) [Suspect]
     Active Substance: OXYCODONE HYDROCHLORIDE
     Indication: PRODUCT USED FOR UNKNOWN INDICATION
     Dosage: UNK
     Route: 048
  2. OXYCODONE/ ACETAMINOPHEN TABLETS [Suspect]
     Active Substance: ACETAMINOPHEN\OXYCODONE HYDROCHLORIDE
     Indication: PAIN MANAGEMENT
     Dosage: UNK
     Route: 048
  3. OXYCODONE HYDROCHLORIDE (SIMILAR TO NDA 22?272) [Suspect]
     Active Substance: OXYCODONE HYDROCHLORIDE
     Indication: PAIN MANAGEMENT
     Dosage: 10 MG, UNK
     Route: 048
  4. OXYCONTIN [Suspect]
     Active Substance: OXYCODONE HYDROCHLORIDE
     Indication: PRODUCT USED FOR UNKNOWN INDICATION
     Dosage: UNK
     Route: 048

REACTIONS (23)
  - Depression [Unknown]
  - Withdrawal syndrome [Unknown]
  - Hallucination [Unknown]
  - Mental disorder [Unknown]
  - Dysuria [Unknown]
  - Heart rate irregular [Unknown]
  - Amnesia [Unknown]
  - General physical health deterioration [Unknown]
  - Suicidal ideation [Unknown]
  - Serotonin syndrome [Unknown]
  - Anxiety [Unknown]
  - Blood pressure increased [Unknown]
  - Somnolence [Unknown]
  - Drug dependence [Unknown]
  - Drug abuse [Unknown]
  - Agitation [Unknown]
  - Blood urine present [Unknown]
  - Fatigue [Unknown]
  - Dizziness [Unknown]
  - Constipation [Unknown]
  - Headache [Unknown]
  - Speech disorder [Unknown]
  - Confusional state [Unknown]

NARRATIVE: CASE EVENT DATE: 2011
